FAERS Safety Report 16040843 (Version 2)
Quarter: 2019Q1

REPORT INFORMATION
  Report Type: Report from Study
  Country: US (occurrence: US)
  Receive Date: 20190306
  Receipt Date: 20190319
  Transmission Date: 20190418
  Serious: Yes (Other)
  Sender: FDA-Public Use
  Company Number: US-SA-2019SA058171

PATIENT
  Age: 27 Year
  Sex: Male

DRUGS (1)
  1. ENOXAPARIN SODIUM. [Suspect]
     Active Substance: ENOXAPARIN SODIUM
     Dosage: 40 MG, QD
     Route: 058

REACTIONS (4)
  - Pulmonary embolism [Not Recovered/Not Resolved]
  - Death [Fatal]
  - Leukaemia [Unknown]
  - Impaired work ability [Unknown]

NARRATIVE: CASE EVENT DATE: 20181001
